FAERS Safety Report 5959349-3 (Version None)
Quarter: 2008Q4

REPORT INFORMATION
  Report Type: 
  Country: None (occurrence: None)
  Receive Date: 20081120
  Receipt Date: 20081105
  Transmission Date: 20090506
  Serious: No
  Sender: FDA-Public Use
  Company Number: US-BAYER-200812529BCC

PATIENT
  Sex: Male

DRUGS (7)
  1. ORIGINAL ALKA-SELTZER TABLETS [Suspect]
     Indication: ANALGESIA
     Route: 048
  2. ORIGINAL ALKA-SELTZER TABLETS [Suspect]
     Route: 048
  3. DETROL [Concomitant]
  4. HYDROCHLOROTHIAZIDE [Concomitant]
  5. RES-Q [Concomitant]
  6. REVERSITOL [Concomitant]
  7. RESCUE CELL POWDER [Concomitant]

REACTIONS (1)
  - NO ADVERSE EVENT [None]
